FAERS Safety Report 5710462-5 (Version None)
Quarter: 2008Q2

REPORT INFORMATION
  Report Type: 
  Country: None (occurrence: None)
  Receive Date: 20080418
  Receipt Date: 20080410
  Transmission Date: 20081010
  Serious: Yes (Death)
  Sender: FDA-Public Use
  Company Number: DE-ABBOTT-08P-062-0441584-00

PATIENT
  Sex: Female

DRUGS (66)
  1. KLACID [Suspect]
     Indication: PNEUMONIA
     Dosage: INTRAGASTRAL
     Route: 048
     Dates: start: 20041018, end: 20041024
  2. PANTOZOL [Suspect]
     Indication: PROPHYLAXIS AGAINST GASTROINTESTINAL ULCER
     Dosage: INTRAGASTRAL
     Route: 048
     Dates: start: 20041007, end: 20041031
  3. EUNERPAN [Suspect]
     Indication: SLEEP DISORDER
     Dosage: INTRAGASTRAL
     Route: 048
     Dates: start: 20041102, end: 20041107
  4. EUNERPAN [Suspect]
     Dosage: INTRAGASTRAL
     Route: 048
     Dates: start: 20041030, end: 20041031
  5. CARBAMAZEPINE [Suspect]
     Indication: AGITATION
     Dosage: INTRAGASTRAL
     Route: 048
     Dates: start: 20041101, end: 20041102
  6. LORAZEPAM [Suspect]
     Indication: SLEEP DISORDER
     Dosage: INTRAGASTRAL
     Route: 048
     Dates: start: 20041014, end: 20041014
  7. LORAZEPAM [Suspect]
     Dosage: INTRAGASTRAL
     Route: 048
     Dates: start: 20041030, end: 20041030
  8. ACETYLSALICYLIC ACID SRT [Suspect]
     Indication: THROMBOSIS PROPHYLAXIS
     Dosage: INTRAGASTRAL
     Route: 048
     Dates: start: 20040927, end: 20041107
  9. ALLOPURINOL [Suspect]
     Indication: HYPERURICAEMIA
     Dosage: INTRAGASTRAL
     Route: 048
     Dates: start: 20041024, end: 20041102
  10. METOPROLOL SUCCINATE [Suspect]
     Indication: ACUTE MYOCARDIAL INFARCTION
     Dosage: INTRAGASTRAL
     Route: 048
     Dates: start: 20041012, end: 20041031
  11. ENOXAPARIN SODIUM [Suspect]
     Indication: THROMBOSIS PROPHYLAXIS
     Route: 058
     Dates: start: 20041011, end: 20041128
  12. RAMIPRIL [Suspect]
     Indication: ESSENTIAL HYPERTENSION
     Dosage: INTRAGASTRAL
     Route: 048
     Dates: start: 20041007, end: 20041031
  13. DIGITOXIN TAB [Suspect]
     Indication: CARDIAC FAILURE
     Dosage: INTRAGASTRAL
     Route: 048
     Dates: start: 20041103, end: 20041111
  14. DIGITOXIN TAB [Suspect]
     Dosage: INTRAGASTRAL
     Route: 048
     Dates: start: 20041014, end: 20041027
  15. PIPAMPERONE HYDROCHLORIDE [Suspect]
     Indication: CONFUSIONAL STATE
     Dosage: INTRAGASTRAL
     Route: 048
     Dates: start: 20041103, end: 20041104
  16. HYDROCHLOROTHIAZIDE [Suspect]
     Indication: ESSENTIAL HYPERTENSION
     Dosage: INTRAGASTRAL
     Route: 048
     Dates: start: 20041012, end: 20041031
  17. FERRO SANOL DUODENAL [Suspect]
     Indication: MINERAL SUPPLEMENTATION
     Dosage: INTRAGASTRAL
     Route: 048
     Dates: start: 20041103, end: 20041107
  18. FUROSEMIDE [Suspect]
     Indication: POLYURIA
     Route: 042
     Dates: start: 20041102, end: 20041111
  19. FUROSEMIDE [Suspect]
     Dosage: INTRAGASTRAL
     Route: 048
     Dates: start: 20041101, end: 20041101
  20. GLUCOSE [Suspect]
     Indication: HYPOGLYCAEMIA
     Route: 042
     Dates: start: 20041102, end: 20041102
  21. GLUCOSE [Suspect]
     Route: 042
     Dates: start: 20041108, end: 20041108
  22. INSULIN LISPRO [Suspect]
     Indication: DIABETES MELLITUS
     Route: 058
     Dates: start: 20040729, end: 20041110
  23. SODIUM PERCHLORATE [Suspect]
     Indication: HYPERTHYROIDISM
     Dosage: INTRAGASTRAL
     Route: 048
     Dates: start: 20041006, end: 20041105
  24. CLOPIDOGREL BISULFATE [Suspect]
     Indication: THROMBOSIS PROPHYLAXIS
     Dosage: INTRAGASTRAL
     Route: 048
     Dates: start: 20041005, end: 20041107
  25. JONOSTERIL [Suspect]
     Indication: FLUID REPLACEMENT
     Route: 042
     Dates: start: 20041002, end: 20041111
  26. KALINOR RETARD [Suspect]
     Indication: HYPOKALAEMIA
     Dosage: INTRAGASTRAL
     Route: 048
     Dates: start: 20041101, end: 20041101
  27. KALINOR RETARD [Suspect]
     Dosage: INTRAGASTRAL
     Route: 048
     Dates: start: 20041025, end: 20041027
  28. POTASSIUM CHLORIDE [Suspect]
     Indication: HYPOKALAEMIA
     Dosage: INTRAGASTRAL
     Route: 048
     Dates: end: 20041104
  29. POTASSIUM CHLORIDE [Suspect]
     Dosage: INTRAGASTRAL
     Route: 048
     Dates: start: 20041023, end: 20041025
  30. POTASSIUM CHLORIDE [Suspect]
     Dosage: INTRAGASTRAL
     Route: 048
     Dates: start: 20041015, end: 20041020
  31. INSULIN GLARGINE [Suspect]
     Indication: DIABETES MELLITUS
     Route: 058
     Dates: start: 20040729, end: 20041110
  32. BROTIZOLAM [Suspect]
     Indication: SLEEP DISORDER
     Dosage: INTRAGASTRAL
     Route: 048
     Dates: start: 20041103, end: 20041103
  33. BROTIZOLAM [Suspect]
     Dosage: INTRAGASTRAL
     Route: 048
     Dates: start: 20041015, end: 20041024
  34. BROTIZOLAM [Suspect]
     Dosage: INTRAGASTRAL
     Route: 048
     Dates: start: 20041110, end: 20041110
  35. LOPERAMIDE HCL [Suspect]
     Indication: DIARRHOEA
     Dosage: INTRAGASTRAL
     Route: 048
     Dates: start: 20041031, end: 20041031
  36. METOCLOPRAMIDE [Suspect]
     Indication: NAUSEA
     Dosage: INTRAGASTRAL
     Route: 048
     Dates: start: 20041025, end: 20041028
  37. METOCLOPRAMIDE [Suspect]
     Indication: VOMITING
     Dosage: INTRAGASTRAL
     Route: 048
     Dates: start: 20041023, end: 20041023
  38. METOCLOPRAMIDE [Suspect]
     Route: 042
     Dates: start: 20041024, end: 20041025
  39. METOPROLOL TARTRATE [Suspect]
     Indication: ESSENTIAL HYPERTENSION
     Dosage: INTRAGASTRAL
     Route: 048
     Dates: start: 20041101, end: 20041107
  40. POTASSIUM CHLORIDE [Suspect]
     Route: 042
     Dates: start: 20041027, end: 20041027
  41. POTASSIUM CHLORIDE [Suspect]
     Route: 042
     Dates: start: 20041102, end: 20041104
  42. RAMIPRIL [Suspect]
     Dosage: INTRAGASTRAL
     Route: 048
     Dates: start: 20041101, end: 20041102
  43. SODIUM CHLORIDE [Suspect]
     Indication: FLUID REPLACEMENT
     Route: 042
     Dates: start: 20041024, end: 20041027
  44. ATORVASTATIN CALCIUM [Suspect]
     Indication: HYPERCHOLESTEROLAEMIA
     Dosage: INTRAGASTRAL
     Route: 048
     Dates: start: 20040729, end: 20041102
  45. THIAMAZOLE [Suspect]
     Indication: HYPERTHYROIDISM
     Dosage: INTRAGASTRAL
     Route: 048
     Dates: start: 20041006, end: 20041105
  46. TORSEMIDE [Suspect]
     Indication: RENAL FAILURE
     Dosage: INTRAGASTRAL
     Route: 048
     Dates: start: 20041012, end: 20041031
  47. TORSEMIDE [Suspect]
     Dosage: INTRAGASTRAL
     Route: 048
     Dates: start: 20041102, end: 20041105
  48. METAMIZOLE SODIUM MONOHYDRATE [Suspect]
     Indication: DRUG USE FOR UNKNOWN INDICATION
     Dosage: INTRAGASTRAL
     Route: 048
     Dates: start: 20041017, end: 20041017
  49. DIMETINDENE MALEATE [Suspect]
     Indication: DRUG USE FOR UNKNOWN INDICATION
     Dates: start: 20041104, end: 20041107
  50. DIMETINDENE MALEATE [Suspect]
     Route: 042
     Dates: start: 20041105, end: 20041105
  51. PIPERACILLIN AND TAZOBACTAM [Concomitant]
     Indication: DRUG USE FOR UNKNOWN INDICATION
     Dates: start: 20041007, end: 20041015
  52. PARACETAMOL [Concomitant]
     Indication: DRUG USE FOR UNKNOWN INDICATION
     Dates: start: 20041014, end: 20041014
  53. PARACETAMOL [Concomitant]
     Dates: start: 20041021, end: 20041021
  54. FLUNITRAZEPAM [Concomitant]
     Indication: DRUG USE FOR UNKNOWN INDICATION
     Route: 048
     Dates: start: 20041018, end: 20041018
  55. HALOPERIDOL [Concomitant]
     Indication: DRUG USE FOR UNKNOWN INDICATION
     Dosage: INTRAGASTRAL
     Route: 048
     Dates: start: 20041104, end: 20041105
  56. PROMETHAZINE HCL [Concomitant]
     Indication: DRUG USE FOR UNKNOWN INDICATION
     Route: 042
     Dates: start: 20041105, end: 20041108
  57. PREDNISOLONE SODIUM SUCCINATE INJ [Concomitant]
     Indication: DRUG USE FOR UNKNOWN INDICATION
     Route: 042
     Dates: start: 20041105, end: 20041110
  58. UNACID [Concomitant]
     Indication: DRUG USE FOR UNKNOWN INDICATION
     Route: 042
     Dates: start: 20041106, end: 20041106
  59. DIGITOXIN TAB [Concomitant]
     Indication: DRUG USE FOR UNKNOWN INDICATION
     Route: 042
     Dates: start: 20041106, end: 20041108
  60. MORPHINE [Concomitant]
     Indication: DRUG USE FOR UNKNOWN INDICATION
     Route: 058
     Dates: start: 20041106, end: 20041109
  61. FLUCONAZOLE [Concomitant]
     Indication: DRUG USE FOR UNKNOWN INDICATION
     Route: 042
     Dates: start: 20041106, end: 20041110
  62. AMPHOTERICIN B [Concomitant]
     Indication: DRUG USE FOR UNKNOWN INDICATION
     Dosage: INTRAGASTRAL
     Route: 048
     Dates: start: 20041106, end: 20041110
  63. LEVOFLOXACIN [Concomitant]
     Indication: DRUG USE FOR UNKNOWN INDICATION
     Route: 042
     Dates: start: 20041107, end: 20041110
  64. POLYSPECTRAN TROPFEN [Concomitant]
     Indication: OCULAR HYPERAEMIA
     Dosage: RETROBULBAR
     Route: 057
     Dates: start: 20041108
  65. CETIRIZINE HCL [Concomitant]
     Indication: DRUG USE FOR UNKNOWN INDICATION
     Dosage: INTRAGASTRAL
     Route: 048
     Dates: start: 20041110, end: 20041110
  66. PREDNICARBATE [Concomitant]
     Indication: SKIN DISORDER
     Route: 061
     Dates: start: 20041110, end: 20041110

REACTIONS (9)
  - BLISTER [None]
  - CONJUNCTIVITIS [None]
  - LIP EROSION [None]
  - NIKOLSKY'S SIGN [None]
  - OCULAR HYPERAEMIA [None]
  - PRURITUS [None]
  - PURPURA [None]
  - STEVENS-JOHNSON SYNDROME [None]
  - SWOLLEN TONGUE [None]
